FAERS Safety Report 19683502 (Version 3)
Quarter: 2021Q3

REPORT INFORMATION
  Report Type: Report from Study
  Country: FR (occurrence: FR)
  Receive Date: 20210811
  Receipt Date: 20210902
  Transmission Date: 20211014
  Serious: Yes (Hospitalization)
  Sender: FDA-Public Use
  Company Number: FR-CELLTRION INC.-2021FR010509

PATIENT

DRUGS (11)
  1. PERTUZUMAB. [Suspect]
     Active Substance: PERTUZUMAB
     Dosage: 420 MG, Q3W (CUMULATIVE DOSE TO FIRST REACTION: 10500 MG)
     Route: 065
     Dates: start: 20201028
  2. LETROZOLE. [Suspect]
     Active Substance: LETROZOLE
     Dosage: 2.5 MG, QD (CUMULATIVE DOSE TO FIRST REACTION: 1347.5 MG)
     Route: 065
     Dates: start: 20190416, end: 20201005
  3. PERTUZUMAB. [Suspect]
     Active Substance: PERTUZUMAB
     Indication: BREAST CANCER
     Dosage: 420 MG, Q3W (CUMULATIVE DOSE TO FIRST REACTION: 10500 MG)
     Route: 065
     Dates: start: 20190416, end: 20200922
  4. DIFFU?K [Concomitant]
     Active Substance: POTASSIUM CHLORIDE
     Indication: PLATELET COUNT DECREASED
     Route: 065
  5. TRASTUZUMAB. [Suspect]
     Active Substance: TRASTUZUMAB
     Dosage: 6 MG/KG, Q3W (CUMULATIVE DOSE TO FIRST REACTION: 150 MG/KG)
     Route: 065
     Dates: start: 20190416, end: 20200922
  6. LETROZOLE. [Suspect]
     Active Substance: LETROZOLE
     Indication: BREAST CANCER
     Dosage: 2.5 MG, QD (CUMULATIVE DOSE TO FIRST REACTION: 1347.5 MG)
     Route: 065
     Dates: start: 20201028
  7. PALBOCICLIB [Suspect]
     Active Substance: PALBOCICLIB
     Dosage: 125 MG
     Route: 065
     Dates: start: 20201029
  8. FENTANYL. [Concomitant]
     Active Substance: FENTANYL
     Indication: PAIN
     Dosage: UNK
     Route: 065
     Dates: start: 20190115
  9. TRASTUZUMAB. [Suspect]
     Active Substance: TRASTUZUMAB
     Indication: BREAST CANCER
     Dosage: 276 MG/KG (CUMULATIVE DOSE TO FIRST REACTION: 150 MG/KG)
     Route: 065
     Dates: start: 20201028
  10. PALBOCICLIB [Suspect]
     Active Substance: PALBOCICLIB
     Indication: BREAST CANCER
     Dosage: 125 MG
     Route: 065
     Dates: start: 20190416, end: 20201005
  11. CEFTRIAXONE. [Concomitant]
     Active Substance: CEFTRIAXONE
     Indication: ANAEMIA
     Route: 065

REACTIONS (2)
  - General physical health deterioration [Recovered/Resolved]
  - Overdose [Unknown]

NARRATIVE: CASE EVENT DATE: 20201013
